FAERS Safety Report 7767953 (Version 4)
Quarter: 2013Q1

REPORT INFORMATION
  Report Type: Report from Study
  Country: US (occurrence: US)
  Receive Date: 20110120
  Receipt Date: 20130225
  Transmission Date: 20140127
  Serious: Yes (Other)
  Sender: FDA-Public Use
  Company Number: US-RB-017077-10

PATIENT
  Sex: Female
  Weight: 65 kg

DRUGS (5)
  1. SUBOXONE FILM [Suspect]
     Indication: DRUG DEPENDENCE
     Dosage: SUBOXONE FILM
     Route: 060
  2. SUBOXONE FILM [Suspect]
     Dosage: SUBOXONE FILM
     Route: 060
  3. SUBOXONE TABLET [Suspect]
     Indication: DRUG DEPENDENCE
     Dosage: TAKES TOTAL 24 MG DAILY DOSE BETWEEN TABLET AND FILM
     Route: 060
     Dates: start: 201011
  4. VICODIN [Suspect]
     Indication: PRODUCT USED FOR UNKNOWN INDICATION
     Dosage: UNKNOWN DOSING DETAILS
     Route: 065
  5. LYRICA [Concomitant]
     Indication: NEUROPATHY PERIPHERAL
     Dosage: DOSING DETAILS UNKNOWN
     Route: 065

REACTIONS (12)
  - Substance abuse [Recovered/Resolved]
  - Pre-existing condition improved [Unknown]
  - Overdose [Recovered/Resolved]
  - Fatigue [Not Recovered/Not Resolved]
  - Hypoaesthesia [Recovered/Resolved]
  - Drug abuse [Recovered/Resolved]
  - Vomiting [Recovered/Resolved]
  - Nausea [Recovered/Resolved]
  - Suicidal ideation [Recovered/Resolved]
  - Drug dependence [Recovered/Resolved]
  - Road traffic accident [Recovered/Resolved]
  - Stress [Not Recovered/Not Resolved]
